FAERS Safety Report 8157576-0 (Version None)
Quarter: 2012Q1

REPORT INFORMATION
  Report Type: 
  Country: None (occurrence: None)
  Receive Date: 20120222
  Receipt Date: 20110503
  Transmission Date: 20120608
  Serious: No
  Sender: FDA-Public Use
  Company Number: US-ASTRAZENECA-2011SE25609

PATIENT
  Age: 65 Year
  Sex: Female

DRUGS (2)
  1. TENORMIN [Suspect]
     Route: 048
     Dates: start: 20110101
  2. TENORMIN [Suspect]
     Indication: PALPITATIONS
     Route: 048
     Dates: start: 19810101, end: 20110101

REACTIONS (2)
  - PALPITATIONS [None]
  - DRUG INEFFECTIVE [None]
